FAERS Safety Report 6616089-5 (Version None)
Quarter: 2010Q1

REPORT INFORMATION
  Report Type: 
  Country: None (occurrence: None)
  Receive Date: 20100305
  Receipt Date: 20100222
  Transmission Date: 20100710
  Serious: Yes (Other)
  Sender: FDA-Public Use
  Company Number: PHHY2010JP11180

PATIENT
  Sex: Female

DRUGS (4)
  1. DIOVAN [Suspect]
     Indication: HYPERTENSION
     Dosage: 80 MG, QD
     Route: 048
     Dates: start: 20080219, end: 20090723
  2. FLUITRAN [Concomitant]
     Indication: HYPERTENSION
     Dosage: UNK
     Route: 048
     Dates: start: 20080325
  3. WARFARIN POTASSIUM [Concomitant]
     Dosage: 2 MG
     Route: 048
     Dates: start: 20081212
  4. LASIX [Concomitant]
     Dosage: 20 MG
     Route: 048
     Dates: start: 20090317

REACTIONS (2)
  - ATRIAL FIBRILLATION [None]
  - CARDIAC FAILURE [None]
